FAERS Safety Report 9942257 (Version 1)
Quarter: 2014Q1

REPORT INFORMATION
  Report Type: Spontaneous
  Country: GB (occurrence: GB)
  Receive Date: 20140303
  Receipt Date: 20140303
  Transmission Date: 20141002
  Serious: Yes (Other)
  Sender: FDA-Public Use
  Company Number: PHFR2014GB001778

PATIENT
  Sex: Female

DRUGS (2)
  1. EVEROLIMUS [Suspect]
     Indication: BREAST CANCER METASTATIC
  2. EXEMESTANE [Suspect]
     Indication: BREAST CANCER METASTATIC

REACTIONS (5)
  - Eye disorder [Unknown]
  - Dyspnoea [Unknown]
  - Swelling face [Recovering/Resolving]
  - Rash [Not Recovered/Not Resolved]
  - Oral herpes [Unknown]
